FAERS Safety Report 11610636 (Version 1)
Quarter: 2015Q4

REPORT INFORMATION
  Report Type: Spontaneous
  Country: US (occurrence: None)
  Receive Date: 20151007
  Receipt Date: 20151007
  Transmission Date: 20160304
  Serious: Yes (Hospitalization)
  Sender: FDA-Public Use
  Company Number: None

PATIENT
  Age: 61 Year
  Sex: Male

DRUGS (13)
  1. INDOMETHACIN. [Concomitant]
     Active Substance: INDOMETHACIN
  2. SOVALDI [Concomitant]
     Active Substance: SOFOSBUVIR
  3. COLCHICINE. [Concomitant]
     Active Substance: COLCHICINE
  4. OMEPRAZOLE. [Concomitant]
     Active Substance: OMEPRAZOLE
  5. OXYCODONE AND ACETAMINOPHEN [Concomitant]
     Active Substance: ACETAMINOPHEN\OXYCODONE\OXYCODONE HYDROCHLORIDE
  6. SOVALDI [Suspect]
     Active Substance: SOFOSBUVIR
     Indication: CHRONIC HEPATITIS C
     Route: 048
     Dates: start: 20150729
  7. IBUPROFEN. [Concomitant]
     Active Substance: IBUPROFEN
  8. KRISTALOSE [Concomitant]
     Active Substance: LACTULOSE
  9. DICYCLOMINE [Concomitant]
     Active Substance: DICYCLOMINE HYDROCHLORIDE
  10. PREDNISONE. [Concomitant]
     Active Substance: PREDNISONE
  11. RIBAVIRIN. [Concomitant]
     Active Substance: RIBAVIRIN
  12. CLONAZEPAM. [Concomitant]
     Active Substance: CLONAZEPAM
  13. MEGACE ES [Concomitant]
     Active Substance: MEGESTROL ACETATE

REACTIONS (2)
  - Skin discolouration [None]
  - Therapy cessation [None]

NARRATIVE: CASE EVENT DATE: 20150928
